FAERS Safety Report 11050918 (Version 1)
Quarter: 2015Q2

REPORT INFORMATION
  Report Type: Spontaneous
  Country: US (occurrence: None)
  Receive Date: 20150420
  Receipt Date: 20150420
  Transmission Date: 20150821
  Serious: No
  Sender: FDA-Public Use
  Company Number: None

PATIENT

DRUGS (2)
  1. VAZCULEP [Suspect]
     Active Substance: PHENYLEPHRINE HYDROCHLORIDE
  2. BLOXIVERZ [Suspect]
     Active Substance: NEOSTIGMINE METHYLSULFATE

REACTIONS (2)
  - Circumstance or information capable of leading to medication error [None]
  - Intercepted drug dispensing error [None]
